FAERS Safety Report 11950430 (Version 1)
Quarter: 2016Q1

REPORT INFORMATION
  Report Type: Spontaneous
  Country: US (occurrence: None)
  Receive Date: 20160122
  Receipt Date: 20160122
  Transmission Date: 20160526
  Serious: No
  Sender: FDA-Public Use
  Company Number: None

PATIENT
  Age: 54 Year
  Sex: Female

DRUGS (1)
  1. HUMIRA [Suspect]
     Active Substance: ADALIMUMAB
     Dosage: ROUTE: SUBCUTANEOUS 057  DOSE FORM: INJECTABLE  FREQUENCY 40MG EVERY 2 WEEKS
     Route: 058
     Dates: start: 20151215

REACTIONS (2)
  - Device failure [None]
  - Drug dose omission [None]

NARRATIVE: CASE EVENT DATE: 20160120
